FAERS Safety Report 24001039 (Version 1)
Quarter: 2024Q2

REPORT INFORMATION
  Report Type: Spontaneous
  Country: US (occurrence: None)
  Receive Date: 20240621
  Receipt Date: 20240621
  Transmission Date: 20240716
  Serious: No
  Sender: FDA-Public Use
  Company Number: None

PATIENT
  Age: 74 Year
  Sex: Male

DRUGS (1)
  1. TREMFYA [Suspect]
     Active Substance: GUSELKUMAB
     Indication: Psoriatic arthropathy
     Dosage: INJECT 100MG SUBCUTANEOUSLY EVERY 8 WEEKS AS DIRECTED.   ?
     Route: 058
     Dates: start: 202112

REACTIONS (1)
  - Bladder cancer [None]
